FAERS Safety Report 6688268-2 (Version None)
Quarter: 2010Q2

REPORT INFORMATION
  Report Type: 
  Country: None (occurrence: None)
  Receive Date: 20100420
  Receipt Date: 20100409
  Transmission Date: 20101027
  Serious: Yes (Other)
  Sender: FDA-Public Use
  Company Number: US-JNJFOC-20100403255

PATIENT
  Sex: Female

DRUGS (2)
  1. TOPAMAX [Suspect]
     Indication: WEIGHT LOSS DIET
     Route: 048
  2. EPHEDRINE [Concomitant]
     Indication: WEIGHT DECREASED
     Route: 048

REACTIONS (18)
  - ABDOMINAL PAIN [None]
  - ANXIETY [None]
  - APHASIA [None]
  - BLOOD PRESSURE INCREASED [None]
  - CONSTIPATION [None]
  - CONTUSION [None]
  - DRY MOUTH [None]
  - DYSPNOEA [None]
  - FATIGUE [None]
  - FLUID RETENTION [None]
  - HEADACHE [None]
  - HEART RATE INCREASED [None]
  - INSOMNIA [None]
  - IRRITABILITY [None]
  - MANIA [None]
  - OEDEMA PERIPHERAL [None]
  - PARAESTHESIA [None]
  - VAGINAL HAEMORRHAGE [None]
